FAERS Safety Report 5709921-0 (Version None)
Quarter: 2008Q2

REPORT INFORMATION
  Report Type: 
  Country: None (occurrence: None)
  Receive Date: 20080418
  Receipt Date: 20070530
  Transmission Date: 20081010
  Serious: No
  Sender: FDA-Public Use
  Company Number: US-ASTRAZENECA-2007UW13194

PATIENT
  Age: 78 Year
  Sex: Male
  Weight: 81.6 kg

DRUGS (5)
  1. TOPROL-XL [Suspect]
     Indication: HEART RATE IRREGULAR
     Route: 048
     Dates: start: 20070201
  2. PRILOSEC [Concomitant]
     Route: 048
  3. SIMVASTATIN [Concomitant]
  4. FLOMAX [Concomitant]
  5. ASPIRIN [Concomitant]

REACTIONS (3)
  - ABDOMINAL PAIN UPPER [None]
  - NAIL DISCOLOURATION [None]
  - ORAL DISCOMFORT [None]
